FAERS Safety Report 5690837-3 (Version None)
Quarter: 2008Q2

REPORT INFORMATION
  Report Type: 
  Country: None (occurrence: None)
  Receive Date: 20080401
  Receipt Date: 20080328
  Transmission Date: 20081010
  Serious: No
  Sender: FDA-Public Use
  Company Number: D0056309A

PATIENT
  Age: 61 Year
  Sex: Male
  Weight: 82 kg

DRUGS (3)
  1. REQUIP [Suspect]
     Indication: PARKINSONISM
     Dosage: 18MG PER DAY
     Route: 065
     Dates: start: 20071201
  2. ENTACAPONE [Suspect]
     Indication: PARKINSONISM
     Dosage: 200MG THREE TIMES PER DAY
     Route: 048
     Dates: start: 20080101
  3. MADOPAR [Suspect]
     Indication: PARKINSONISM
     Route: 048

REACTIONS (2)
  - PARAESTHESIA [None]
  - POLYNEUROPATHY [None]
